FAERS Safety Report 8575048-6 (Version None)
Quarter: 2012Q3

REPORT INFORMATION
  Report Type: 
  Country: None (occurrence: None)
  Receive Date: 20120807
  Receipt Date: 20120726
  Transmission Date: 20120928
  Serious: Yes (Hospitalization, Other)
  Sender: FDA-Public Use
  Company Number: US-009507513-1201USA02274

PATIENT

DRUGS (2)
  1. FOSAMAX [Suspect]
     Dosage: 70 MG, QW
     Route: 048
     Dates: start: 20010905, end: 20040310
  2. FOSAMAX [Suspect]
     Indication: OSTEOPOROSIS PROPHYLAXIS
     Dosage: 10 MG, QD
     Route: 048
     Dates: start: 19970219, end: 20040310

REACTIONS (9)
  - FEMUR FRACTURE [None]
  - INDURATION [None]
  - TOOTH DISORDER [None]
  - BLOOD CHOLESTEROL INCREASED [None]
  - OSTEOPENIA [None]
  - ANXIETY [None]
  - LOW TURNOVER OSTEOPATHY [None]
  - HYPERTENSION [None]
  - OSTEOARTHRITIS [None]
